FAERS Safety Report 21484444 (Version 1)
Quarter: 2022Q4

REPORT INFORMATION
  Report Type: Spontaneous
  Country: US (occurrence: US)
  Receive Date: 20221020
  Receipt Date: 20221020
  Transmission Date: 20230113
  Serious: Yes (Hospitalization, Other)
  Sender: FDA-Public Use
  Company Number: US-Accord-281645

PATIENT
  Age: 21 Year
  Sex: Male

DRUGS (10)
  1. BUPROPION HYDROCHLORIDE [Interacting]
     Active Substance: BUPROPION HYDROCHLORIDE
     Indication: Major depression
     Dosage: EXTENDED RELEASE (XL) 300 MG DAILY
  2. ATOMOXETINE HYDROCHLORIDE [Interacting]
     Active Substance: ATOMOXETINE HYDROCHLORIDE
     Indication: Attention deficit hyperactivity disorder
     Dosage: 60 MG DAILY
  3. QUETIAPINE [Concomitant]
     Active Substance: QUETIAPINE
     Indication: Insomnia
  4. LORAZEPAM [Concomitant]
     Active Substance: LORAZEPAM
     Indication: Anxiety
     Dosage: 0.5 MG DAILY
  5. DIVALPROEX SODIUM [Concomitant]
     Active Substance: DIVALPROEX SODIUM
     Indication: Product used for unknown indication
     Dosage: 1500 MG TOTAL DAILY DOSE.
  6. ALPRAZOLAM [Concomitant]
     Active Substance: ALPRAZOLAM
     Indication: Anxiety
  7. BUPROPION HYDROCHLORIDE [Interacting]
     Active Substance: BUPROPION HYDROCHLORIDE
     Indication: Major depression
     Dosage: EXTENDED RELEASE (XL) 300 MG DAILY
  8. ATOMOXETINE HYDROCHLORIDE [Interacting]
     Active Substance: ATOMOXETINE HYDROCHLORIDE
     Indication: Attention deficit hyperactivity disorder
     Dosage: 40 MG DAILY
  9. QUETIAPINE [Concomitant]
     Active Substance: QUETIAPINE
     Indication: Insomnia
     Dosage: 400 MG AT BEDTIME
  10. QUETIAPINE [Concomitant]
     Active Substance: QUETIAPINE
     Indication: Insomnia
     Dosage: 200 MG NIGHTLY

REACTIONS (13)
  - Drug interaction [Unknown]
  - Generalised tonic-clonic seizure [Recovered/Resolved]
  - Psychomotor hyperactivity [Unknown]
  - Restlessness [Unknown]
  - Hallucination, visual [Recovered/Resolved]
  - Hallucination, auditory [Unknown]
  - Psychotic disorder [Recovered/Resolved]
  - Hallucination, tactile [Recovered/Resolved]
  - Confusional state [Recovered/Resolved]
  - Distractibility [Recovered/Resolved]
  - Somnolence [Recovered/Resolved]
  - Leukocytosis [Recovered/Resolved]
  - Psychotic symptom [Unknown]
